FAERS Safety Report 13662959 (Version 1)
Quarter: 2017Q2

REPORT INFORMATION
  Report Type: Spontaneous
  Country: US (occurrence: US)
  Receive Date: 20170619
  Receipt Date: 20170619
  Transmission Date: 20170830
  Serious: No
  Sender: FDA-Public Use
  Company Number: US-ASTRAZENECA-2017SE63192

PATIENT
  Age: 23421 Day
  Sex: Female
  Weight: 61.2 kg

DRUGS (2)
  1. TOPROL XL [Suspect]
     Active Substance: METOPROLOL SUCCINATE
     Indication: BLOOD PRESSURE ABNORMAL
     Route: 048
     Dates: start: 2007
  2. CRESTOR [Suspect]
     Active Substance: ROSUVASTATIN CALCIUM
     Indication: BLOOD CHOLESTEROL INCREASED
     Route: 048
     Dates: start: 20170607

REACTIONS (4)
  - Abdominal pain [Unknown]
  - Abdominal distension [Unknown]
  - Blood cholesterol increased [Unknown]
  - Dermatitis herpetiformis [Not Recovered/Not Resolved]

NARRATIVE: CASE EVENT DATE: 20170609
